FAERS Safety Report 6259963-4 (Version None)
Quarter: 2009Q3

REPORT INFORMATION
  Report Type: 
  Country: None (occurrence: None)
  Receive Date: 20090706
  Receipt Date: 20090626
  Transmission Date: 20100115
  Serious: Yes (Other)
  Sender: FDA-Public Use
  Company Number: ADR5792009

PATIENT
  Age: 58 Year
  Sex: Male

DRUGS (6)
  1. PRAVASTATIN                            (MFR: UNKNOWN) [Suspect]
     Dosage: 10 MG, ORAL
     Route: 048
     Dates: start: 20080201, end: 20080305
  2. SIMVASTATIN [Suspect]
     Dosage: 10 MG, ORAL
     Route: 048
     Dates: start: 20081207, end: 20090201
  3. EZETIMIBE [Concomitant]
  4. VIAGRA [Concomitant]
  5. ASPIRIN [Concomitant]
  6. TROSPIUM CHLORIDE [Concomitant]

REACTIONS (4)
  - BLOOD PRESSURE ABNORMAL [None]
  - DRUG INEFFECTIVE [None]
  - DRUG INTERACTION [None]
  - ERECTILE DYSFUNCTION [None]
